FAERS Safety Report 12012741 (Version 2)
Quarter: 2016Q1

REPORT INFORMATION
  Report Type: Report from Study
  Country: ES (occurrence: ES)
  Receive Date: 20160205
  Receipt Date: 20160217
  Transmission Date: 20160526
  Serious: Yes (Hospitalization, Other)
  Sender: FDA-Public Use
  Company Number: ES-ABBVIE-16P-144-1550089-00

PATIENT
  Age: 63 Year
  Sex: Male

DRUGS (1)
  1. DUODOPA [Suspect]
     Active Substance: CARBIDOPA\LEVODOPA
     Indication: PARKINSON^S DISEASE
     Route: 050
     Dates: start: 200910

REACTIONS (8)
  - Hyperhidrosis [Not Recovered/Not Resolved]
  - Aggression [Not Recovered/Not Resolved]
  - Cognitive disorder [Not Recovered/Not Resolved]
  - Confusional state [Unknown]
  - Musculoskeletal stiffness [Not Recovered/Not Resolved]
  - On and off phenomenon [Unknown]
  - Stoma site discharge [Recovering/Resolving]
  - Granuloma [Recovering/Resolving]

NARRATIVE: CASE EVENT DATE: 2014
